FAERS Safety Report 17343382 (Version 2)
Quarter: 2025Q2

REPORT INFORMATION
  Report Type: Spontaneous
  Country: FR (occurrence: FR)
  Receive Date: 20200129
  Receipt Date: 20250423
  Transmission Date: 20250716
  Serious: Yes (Death, Hospitalization, Other)
  Sender: SANOFI AVENTIS
  Company Number: None

PATIENT
  Age: 82 Year
  Sex: Male
  Weight: 52 kg

DRUGS (3)
  1. ZALTRAP [Suspect]
     Active Substance: ZIV-AFLIBERCEPT
     Indication: Rectal cancer
     Dosage: 230 MG, QOW
     Route: 042
     Dates: start: 20191118, end: 20191216
  2. FLUOROURACIL [Suspect]
     Active Substance: FLUOROURACIL
     Indication: Rectal cancer
     Dosage: 3200 MG, QOW
     Route: 042
     Dates: start: 20191118, end: 20191216
  3. IRINOTECAN [Suspect]
     Active Substance: IRINOTECAN
     Indication: Rectal cancer
     Dosage: 280 MG, QOW
     Route: 040
     Dates: start: 20191118, end: 20191216

REACTIONS (3)
  - Diarrhoea [Fatal]
  - Neutropenic colitis [Fatal]
  - Vomiting [Recovered/Resolved]

NARRATIVE: CASE EVENT DATE: 20191101
